FAERS Safety Report 23526003 (Version 1)
Quarter: 2024Q1

REPORT INFORMATION
  Report Type: Spontaneous
  Country: FR (occurrence: FR)
  Receive Date: 20240215
  Receipt Date: 20240215
  Transmission Date: 20240410
  Serious: Yes (Other)
  Sender: FDA-Public Use
  Company Number: FR-AFSSAPS-NC2024000091

PATIENT
  Age: 63 Year
  Sex: Male
  Weight: 73 kg

DRUGS (3)
  1. PAROXETINE [Suspect]
     Active Substance: PAROXETINE
     Indication: Affective disorder
     Dosage: 2 DOSAGE FORM, ONCE A DAY
     Route: 048
     Dates: start: 20231006, end: 20231107
  2. PAROXETINE [Suspect]
     Active Substance: PAROXETINE
     Dosage: 3 DOSAGE FORM, ONCE A DAY
     Route: 048
     Dates: start: 20231108, end: 20231114
  3. PAROXETINE [Suspect]
     Active Substance: PAROXETINE
     Dosage: DOSAGE REDUCTION UNTIL DISCONTINUATION
     Route: 048
     Dates: start: 20231115, end: 20231120

REACTIONS (4)
  - Bradycardia [Recovered/Resolved]
  - Supraventricular extrasystoles [Recovered/Resolved]
  - Sinoatrial block [Recovered/Resolved]
  - Orthostatic hypotension [Recovered/Resolved]

NARRATIVE: CASE EVENT DATE: 20231016
